FAERS Safety Report 8235242-0 (Version None)
Quarter: 2012Q1

REPORT INFORMATION
  Report Type: 
  Country: None (occurrence: None)
  Receive Date: 20120326
  Receipt Date: 20120321
  Transmission Date: 20120608
  Serious: Yes (Other)
  Sender: FDA-Public Use
  Company Number: US-PFIZER INC-2012074422

PATIENT
  Sex: Female

DRUGS (1)
  1. PREPARATION H MEDICATED WIPES [Suspect]
     Indication: HAEMORRHOIDS
     Dosage: UNK
     Dates: start: 20120201, end: 20120101

REACTIONS (4)
  - SKIN IRRITATION [None]
  - BURNING SENSATION [None]
  - HAEMORRHAGE [None]
  - EXCORIATION [None]
